FAERS Safety Report 8374734-0 (Version None)
Quarter: 2012Q2

REPORT INFORMATION
  Report Type: 
  Country: None (occurrence: None)
  Receive Date: 20120521
  Receipt Date: 20120514
  Transmission Date: 20120825
  Serious: Yes (Hospitalization)
  Sender: FDA-Public Use
  Company Number: US-ACTELION-A-NJ2012-64683

PATIENT

DRUGS (13)
  1. ASPIRIN [Concomitant]
  2. NIASPAN [Concomitant]
  3. DEXLANSOPRAZOLE [Concomitant]
  4. NEURONTIN [Concomitant]
  5. LOTREL [Concomitant]
  6. TRACLEER [Suspect]
     Indication: PULMONARY ARTERIAL HYPERTENSION
     Dosage: UNK
     Route: 048
     Dates: start: 20120416, end: 20120101
  7. SIMVASTATIN [Concomitant]
  8. SPIRIVA [Concomitant]
  9. PROAIR HFA [Concomitant]
  10. LEVOTHYROXINE SODIUM [Concomitant]
  11. CYMBALTA [Concomitant]
  12. ADCIRCA [Concomitant]
  13. LASIX [Concomitant]

REACTIONS (9)
  - DYSPNOEA [None]
  - OXYGEN SATURATION DECREASED [None]
  - NAUSEA [None]
  - DIZZINESS [None]
  - ANAEMIA [None]
  - HAEMOGLOBIN DECREASED [None]
  - TRANSFUSION [None]
  - BLOOD CREATININE INCREASED [None]
  - HEADACHE [None]
